FAERS Safety Report 18709868 (Version 1)
Quarter: 2021Q1

REPORT INFORMATION
  Report Type: Spontaneous
  Country: IT (occurrence: IT)
  Receive Date: 20210106
  Receipt Date: 20210106
  Transmission Date: 20210419
  Serious: Yes (Other)
  Sender: FDA-Public Use
  Company Number: NVSC2021IT000631

PATIENT
  Age: 53 Year
  Sex: Male

DRUGS (2)
  1. PANTOPRAZOLE [Suspect]
     Active Substance: PANTOPRAZOLE
     Indication: DRUG ABUSE
     Dosage: 380 MG, TOTAL
     Route: 048
     Dates: start: 20201118, end: 20201118
  2. TAVOR (SIMVASTATIN) [Suspect]
     Active Substance: SIMVASTATIN
     Indication: DRUG ABUSE
     Dosage: 2 MG, TOTAL
     Route: 048
     Dates: start: 20201118, end: 20201118

REACTIONS (4)
  - Drug abuse [Recovered/Resolved]
  - Vertigo [Recovered/Resolved]
  - Dysarthria [Recovered/Resolved]
  - Confabulation [Recovered/Resolved]

NARRATIVE: CASE EVENT DATE: 20201118
